FAERS Safety Report 25263599 (Version 1)
Quarter: 2025Q2

REPORT INFORMATION
  Report Type: Spontaneous
  Country: IN (occurrence: IN)
  Receive Date: 20250502
  Receipt Date: 20250502
  Transmission Date: 20250717
  Serious: Yes (Hospitalization, Other)
  Sender: PFIZER
  Company Number: IN-PFIZER INC-PV202500051358

PATIENT
  Age: 41 Year
  Sex: Male

DRUGS (1)
  1. LORLATINIB [Suspect]
     Active Substance: LORLATINIB
     Indication: Lung adenocarcinoma
     Dosage: 100MG 1TAB ONCE DAILY
     Route: 048
     Dates: start: 20250221

REACTIONS (7)
  - Pleural effusion [Unknown]
  - Condition aggravated [Unknown]
  - Carcinoembryonic antigen increased [Unknown]
  - Lipoma [Unknown]
  - Renal disorder [Unknown]
  - Haemoglobin decreased [Unknown]
  - Prothrombin time shortened [Unknown]

NARRATIVE: CASE EVENT DATE: 20250326
